FAERS Safety Report 13151859 (Version 1)
Quarter: 2017Q1

REPORT INFORMATION
  Report Type: Spontaneous
  Country: FR (occurrence: FR)
  Receive Date: 20170125
  Receipt Date: 20170125
  Transmission Date: 20170428
  Serious: Yes (Hospitalization)
  Sender: FDA-Public Use
  Company Number: FR-009507513-1701FRA009809

PATIENT
  Age: 88 Year
  Sex: Female

DRUGS (11)
  1. BACTRIM [Concomitant]
     Active Substance: SULFAMETHOXAZOLE\TRIMETHOPRIM
     Indication: CYSTITIS ESCHERICHIA
     Dosage: UNK
     Dates: start: 20161125
  2. FOSFOMYCIN [Concomitant]
     Active Substance: FOSFOMYCIN
     Indication: CYSTITIS ESCHERICHIA
     Dosage: UNK
     Dates: start: 20161125
  3. TANGANIL [Concomitant]
     Active Substance: ACETYLLEUCINE
     Indication: SEPSIS
     Dosage: 500 MG, TID
     Dates: start: 20161222, end: 20170102
  4. DILTIAZEM. [Concomitant]
     Active Substance: DILTIAZEM
     Indication: SEPSIS
     Dosage: 200 MG, QD
     Dates: start: 20161222, end: 20170102
  5. SERESTA [Concomitant]
     Active Substance: OXAZEPAM
     Indication: SEPSIS
     Dosage: 50 MG, AT BEDTIME
     Dates: start: 20161222, end: 20170102
  6. ORNIDAZOLE [Concomitant]
     Active Substance: ORNIDAZOLE
     Dosage: UNK
     Dates: start: 20161216
  7. DAFALGAN [Concomitant]
     Active Substance: ACETAMINOPHEN
     Indication: SEPSIS
     Dosage: 1 G, Q6H
     Dates: start: 20161222, end: 20170102
  8. IMIPENEM AND CILASTATIN [Suspect]
     Active Substance: CILASTATIN SODIUM\IMIPENEM
     Indication: SEPSIS
     Dosage: 500 MG, TID
     Dates: start: 20161222, end: 20161227
  9. IMIPENEM AND CILASTATIN [Suspect]
     Active Substance: CILASTATIN SODIUM\IMIPENEM
     Dosage: 1 G, Q8H
     Dates: start: 20161228, end: 20170102
  10. KARDEGIC [Concomitant]
     Active Substance: ASPIRIN LYSINE
     Indication: SEPSIS
     Dosage: 75 MG, QD
     Dates: start: 20161222, end: 20170102
  11. ROCEPHIN [Concomitant]
     Active Substance: CEFTRIAXONE SODIUM
     Dosage: UNK
     Dates: start: 20161216, end: 20161222

REACTIONS (1)
  - Clostridium difficile infection [Recovering/Resolving]

NARRATIVE: CASE EVENT DATE: 20161229
